FAERS Safety Report 23586608 (Version 1)
Quarter: 2024Q1

REPORT INFORMATION
  Report Type: Spontaneous
  Country: CN (occurrence: CN)
  Receive Date: 20240301
  Receipt Date: 20240301
  Transmission Date: 20240410
  Serious: Yes (Other)
  Sender: FDA-Public Use
  Company Number: CN-BoehringerIngelheim-2024-BI-011324

PATIENT
  Age: 67 Year
  Sex: Female

DRUGS (3)
  1. LINAGLIPTIN [Suspect]
     Active Substance: LINAGLIPTIN
     Indication: Diabetes mellitus management
     Dosage: 1 DOSAGE FORM
     Route: 048
     Dates: start: 20240123, end: 20240208
  2. INSULIN ASPART [Suspect]
     Active Substance: INSULIN ASPART
     Indication: Diabetes mellitus management
     Route: 058
     Dates: start: 20240123, end: 20240208
  3. Levofloxacin sodium chloride injection [Concomitant]
     Indication: Pneumonia
     Route: 042
     Dates: start: 20240206, end: 20240208

REACTIONS (1)
  - Hypoglycaemic coma [Recovering/Resolving]

NARRATIVE: CASE EVENT DATE: 20240208
